FAERS Safety Report 5120327-8 (Version None)
Quarter: 2006Q4

REPORT INFORMATION
  Report Type: 
  Country: None (occurrence: None)
  Receive Date: 20061002
  Receipt Date: 20061002
  Transmission Date: 20070319
  Serious: Yes (Other)
  Sender: FDA-Public Use
  Company Number: None

PATIENT
  Age: 49 Year
  Sex: Female
  Weight: 49.8957 kg

DRUGS (1)
  1. BONIVA [Suspect]
     Indication: OSTEOPENIA
     Dosage: 1 MONTHLY PO
     Route: 048
     Dates: start: 20050801, end: 20060901

REACTIONS (10)
  - ABDOMINAL PAIN UPPER [None]
  - ARTHRALGIA [None]
  - BLOOD PRESSURE INCREASED [None]
  - BONE PAIN [None]
  - FATIGUE [None]
  - HEART RATE INCREASED [None]
  - HYPOAESTHESIA [None]
  - MIGRAINE [None]
  - MUSCLE SPASMS [None]
  - PAIN IN EXTREMITY [None]
